FAERS Safety Report 6679840-4 (Version None)
Quarter: 2010Q2

REPORT INFORMATION
  Report Type: 
  Country: None (occurrence: None)
  Receive Date: 20100409
  Receipt Date: 20090629
  Transmission Date: 20101027
  Serious: Yes (Disabling)
  Sender: FDA-Public Use
  Company Number: APP201000090

PATIENT
  Age: 59 Year
  Sex: Female

DRUGS (3)
  1. SENSORCAINE [Suspect]
     Indication: MUSCULOSKELETAL PAIN
     Dosage: CONTINUOUS VIA PUMP RIGHT SHOULDER, INTRA-ARTICULAR
     Route: 014
     Dates: start: 20040819
  2. I-FLOW ON-Q PAIN PUMP [Suspect]
     Indication: MUSCULOSKELETAL PAIN
     Dates: start: 20040819
  3. ANCEF [Concomitant]

REACTIONS (4)
  - CHONDROPATHY [None]
  - JOINT RANGE OF MOTION DECREASED [None]
  - MUSCULOSKELETAL DISORDER [None]
  - MUSCULOSKELETAL PAIN [None]
